FAERS Safety Report 5646424-6 (Version None)
Quarter: 2008Q1

REPORT INFORMATION
  Report Type: 
  Country: None (occurrence: None)
  Receive Date: 20080228
  Receipt Date: 20080228
  Transmission Date: 20080703
  Serious: Yes (Life-Threatening, Other)
  Sender: FDA-Public Use
  Company Number: None

PATIENT

DRUGS (1)
  1. AVELOX [Suspect]
     Dosage: 400 MG TABLET, ONCE A DAY
     Dates: start: 20080226

REACTIONS (4)
  - ANAPHYLACTIC SHOCK [None]
  - FALL [None]
  - LOSS OF CONSCIOUSNESS [None]
  - NO REACTION ON PREVIOUS EXPOSURE TO DRUG [None]
